FAERS Safety Report 6787749-0 (Version None)
Quarter: 2010Q2

REPORT INFORMATION
  Report Type: 
  Country: None (occurrence: None)
  Receive Date: 20100623
  Receipt Date: 20070809
  Transmission Date: 20101027
  Serious: No
  Sender: FDA-Public Use
  Company Number: US-PFIZER INC-2007063280

PATIENT
  Sex: Female

DRUGS (2)
  1. SUTENT [Suspect]
  2. NEXIUM [Interacting]
     Indication: DYSPEPSIA

REACTIONS (3)
  - DRUG INEFFECTIVE [None]
  - DRUG INTERACTION [None]
  - DYSPEPSIA [None]
